FAERS Safety Report 6434662-4 (Version None)
Quarter: 2009Q4

REPORT INFORMATION
  Report Type: 
  Country: None (occurrence: None)
  Receive Date: 20091109
  Receipt Date: 20091109
  Transmission Date: 20100525
  Serious: No
  Sender: FDA-Public Use
  Company Number: None

PATIENT
  Sex: Male

DRUGS (1)
  1. ALENDRONATE SODIUM [Suspect]
     Dosage: 70 MG WEEKLY PO
     Route: 048
     Dates: start: 20090615

REACTIONS (1)
  - ALOPECIA [None]
